FAERS Safety Report 8283374-3 (Version None)
Quarter: 2012Q2

REPORT INFORMATION
  Report Type: 
  Country: None (occurrence: None)
  Receive Date: 20120413
  Receipt Date: 20120404
  Transmission Date: 20120825
  Serious: Yes (Hospitalization, Other)
  Sender: FDA-Public Use
  Company Number: US-ASTRAZENECA-2012SE22274

PATIENT
  Age: 69 Year
  Sex: Female

DRUGS (3)
  1. LIMU SEAWEEDS [Suspect]
     Indication: DYSPEPSIA
     Route: 065
  2. PRILOSEC [Suspect]
     Route: 048
  3. PREMARIN [Suspect]
     Indication: SURGERY
     Route: 065
     Dates: end: 20120110

REACTIONS (5)
  - SWELLING FACE [None]
  - HOT FLUSH [None]
  - INTERCEPTED MEDICATION ERROR [None]
  - WEIGHT DECREASED [None]
  - TREMOR [None]
